FAERS Safety Report 6522304-9 (Version None)
Quarter: 2009Q4

REPORT INFORMATION
  Report Type: 
  Country: None (occurrence: None)
  Receive Date: 20091230
  Receipt Date: 20091221
  Transmission Date: 20100525
  Serious: Yes (Hospitalization)
  Sender: FDA-Public Use
  Company Number: B0593057A

PATIENT
  Sex: Female
  Weight: 50 kg

DRUGS (10)
  1. TYKERB [Suspect]
     Indication: BREAST CANCER
     Route: 048
     Dates: start: 20090827, end: 20090923
  2. TYKERB [Suspect]
     Route: 048
     Dates: start: 20091017, end: 20091017
  3. XELODA [Concomitant]
     Indication: DRUG USE FOR UNKNOWN INDICATION
     Route: 048
     Dates: start: 20090828, end: 20090906
  4. XELODA [Concomitant]
     Route: 048
     Dates: start: 20090917, end: 20090924
  5. FUROSEMIDE [Concomitant]
     Indication: PLEURAL EFFUSION
     Route: 048
  6. UNKNOWN MEDICATION [Concomitant]
     Indication: PLEURAL EFFUSION
     Route: 048
  7. ACTOS [Concomitant]
     Indication: DIABETES MELLITUS
     Route: 048
  8. PARIET [Concomitant]
     Route: 048
  9. DUROTEP [Concomitant]
     Indication: PAIN
     Route: 062
     Dates: start: 20090821
  10. OXINORM [Concomitant]
     Indication: PAIN
     Route: 048
     Dates: start: 20090821

REACTIONS (4)
  - DIARRHOEA [None]
  - PNEUMONIA ASPIRATION [None]
  - PSEUDOMEMBRANOUS COLITIS [None]
  - VOMITING [None]
